FAERS Safety Report 9608041 (Version 1)
Quarter: 2013Q4

REPORT INFORMATION
  Report Type: Spontaneous
  Country: None (occurrence: None)
  Receive Date: 20131007
  Receipt Date: 20131007
  Transmission Date: 20140711
  Serious: Yes (Hospitalization, Other)
  Sender: FDA-Public Use
  Company Number: US-ZYDUS-002231

PATIENT
  Age: 50 Year
  Sex: Female

DRUGS (5)
  1. LAMOTRIGINE [Suspect]
  2. CYCLOBENZAPRINE [Suspect]
     Indication: PAIN MANAGEMENT
     Dosage: 10.00-MG-3.0DAYS
  3. IBUPROPION(BUPROPION) [Concomitant]
  4. ESCITALOPRAM (ESCITALOPRAM) [Concomitant]
  5. TRIAMCINOLONE (TRIAMCINOLONE) [Concomitant]

REACTIONS (4)
  - Drug reaction with eosinophilia and systemic symptoms [None]
  - Viral infection [None]
  - Drug interaction [None]
  - Rash [None]
